FAERS Safety Report 8882283 (Version 1)
Quarter: 2012Q4

REPORT INFORMATION
  Report Type: 
  Country: FR (occurrence: FR)
  Receive Date: 20121105
  Receipt Date: 20121105
  Transmission Date: 20130627
  Serious: Yes (Hospitalization, Disabling, Other)
  Sender: FDA-Public Use
  Company Number: FR-ELI_LILLY_AND_COMPANY-FR201210008953

PATIENT
  Age: 60 Year
  Sex: Male

DRUGS (8)
  1. EFIENT [Suspect]
     Indication: ANTICOAGULANT THERAPY
     Dosage: 10 mg, qd
     Dates: start: 20111118, end: 20120808
  2. KARDEGIC [Concomitant]
     Dosage: 75 mg, unknown
     Dates: start: 20111118, end: 20120808
  3. KARDEGIC [Concomitant]
     Dosage: UNK
     Dates: start: 20120817
  4. BACLOFENE IREX [Concomitant]
  5. CRESTOR [Concomitant]
  6. FORLAX [Concomitant]
  7. PERINDOPRIL [Concomitant]
  8. TAMSULOSINE HCL A [Concomitant]

REACTIONS (13)
  - Quadriparesis [Unknown]
  - Subdural haematoma [Recovered/Resolved]
  - Syncope [Unknown]
  - Craniocerebral injury [Recovered/Resolved]
  - Syncope [Unknown]
  - Loss of consciousness [Recovered/Resolved]
  - Pupils unequal [Unknown]
  - Prothrombin time shortened [Unknown]
  - Craniocerebral injury [Recovered/Resolved]
  - Confusional state [Unknown]
  - Factor VII deficiency [Unknown]
  - Chest pain [Unknown]
  - Fall [Unknown]
